FAERS Safety Report 8926340 (Version 3)
Quarter: 2013Q2

REPORT INFORMATION
  Report Type: Spontaneous
  Country: US (occurrence: US)
  Receive Date: 20121127
  Receipt Date: 20130409
  Transmission Date: 20140414
  Serious: Yes (Hospitalization)
  Sender: FDA-Public Use
  Company Number: US-GLAXOSMITHKLINE-A0997328A

PATIENT
  Age: 79 Year
  Sex: Female

DRUGS (8)
  1. PROMACTA [Suspect]
     Indication: IDIOPATHIC THROMBOCYTOPENIC PURPURA
     Dosage: 25MG TWICE PER DAY
     Route: 048
     Dates: start: 20120907
  2. LIPITOR [Concomitant]
  3. LISINOPRIL [Concomitant]
  4. UNKNOWN MEDICATION [Concomitant]
  5. NEXIUM [Concomitant]
  6. BUPROPION SR [Concomitant]
  7. GABAPENTIN [Concomitant]
  8. EYE DROPS [Concomitant]

REACTIONS (22)
  - Eye haemorrhage [Not Recovered/Not Resolved]
  - Headache [Unknown]
  - Neck pain [Unknown]
  - Back pain [Unknown]
  - Pruritus [Unknown]
  - Pain [Unknown]
  - Gait disturbance [Unknown]
  - Joint swelling [Unknown]
  - Paraesthesia [Unknown]
  - Pain in extremity [Unknown]
  - Dysstasia [Unknown]
  - Asthenia [Unknown]
  - Rectal haemorrhage [Unknown]
  - Dehydration [Unknown]
  - Anaemia [Unknown]
  - Gastrointestinal haemorrhage [Unknown]
  - Hypotension [Unknown]
  - Occult blood positive [Unknown]
  - Ecchymosis [Unknown]
  - Blood glucose increased [Unknown]
  - Platelet count decreased [Unknown]
  - Haemoglobin decreased [Unknown]
